FAERS Safety Report 12686747 (Version 1)
Quarter: 2016Q3

REPORT INFORMATION
  Report Type: Spontaneous
  Country: US (occurrence: US)
  Receive Date: 20160825
  Receipt Date: 20160825
  Transmission Date: 20161109
  Serious: No
  Sender: FDA-Public Use
  Company Number: US-NOVOPROD-466901

PATIENT
  Sex: Female

DRUGS (1)
  1. VICTOZA [Suspect]
     Active Substance: LIRAGLUTIDE
     Indication: PRODUCT USED FOR UNKNOWN INDICATION
     Dosage: UNK
     Route: 058

REACTIONS (15)
  - Asthenia [Unknown]
  - Myalgia [Unknown]
  - Headache [Unknown]
  - Dizziness [Unknown]
  - Muscular weakness [Unknown]
  - Pruritus [Unknown]
  - Head discomfort [Unknown]
  - Muscle spasms [Unknown]
  - Dry mouth [Unknown]
  - Balance disorder [Unknown]
  - Tinnitus [Unknown]
  - Rash [Unknown]
  - Pain in extremity [Unknown]
  - Joint swelling [Unknown]
  - Blood glucose fluctuation [Unknown]
